FAERS Safety Report 4350798-6 (Version None)
Quarter: 2004Q2

REPORT INFORMATION
  Report Type: 
  Country: None (occurrence: None)
  Receive Date: 20040430
  Receipt Date: 20040415
  Transmission Date: 20050107
  Serious: Yes (Other)
  Sender: FDA-Public Use
  Company Number: CA-ROCHE-365748

PATIENT
  Age: 55 Year
  Sex: Female

DRUGS (6)
  1. XENICAL [Suspect]
     Indication: DRUG USE FOR UNKNOWN INDICATION
     Route: 048
  2. ELAVIL [Concomitant]
     Indication: DRUG USE FOR UNKNOWN INDICATION
  3. THYROID TAB [Concomitant]
  4. PROVERA [Concomitant]
  5. SERZONE [Concomitant]
  6. PREMARIN [Concomitant]

REACTIONS (1)
  - CHOLELITHIASIS [None]
